FAERS Safety Report 9866119 (Version 1)
Quarter: 2014Q1

REPORT INFORMATION
  Report Type: Spontaneous
  Country: US (occurrence: US)
  Receive Date: 20140203
  Receipt Date: 20140203
  Transmission Date: 20141002
  Serious: No
  Sender: FDA-Public Use
  Company Number: US-ALLERGAN-1317000US

PATIENT
  Sex: Female

DRUGS (2)
  1. RESTASIS [Suspect]
     Indication: EYE PENETRATION
     Dosage: UNK
  2. GENTEAL [Suspect]
     Indication: EYE PENETRATION

REACTIONS (2)
  - Off label use [Unknown]
  - Eye irritation [Unknown]
